FAERS Safety Report 8164029-2 (Version None)
Quarter: 2012Q1

REPORT INFORMATION
  Report Type: 
  Country: None (occurrence: None)
  Receive Date: 20120224
  Receipt Date: 20120215
  Transmission Date: 20120608
  Serious: Yes (Other)
  Sender: FDA-Public Use
  Company Number: PHHY2012FR014027

PATIENT
  Age: 38 Year
  Sex: Female

DRUGS (1)
  1. RASILEZ HCT [Suspect]
     Indication: HYPERTENSION
     Dosage: 300/12.5 MG QD
     Route: 048

REACTIONS (2)
  - ABORTION SPONTANEOUS [None]
  - MATERNAL EXPOSURE DURING PREGNANCY [None]
